FAERS Safety Report 14666965 (Version 5)
Quarter: 2018Q2

REPORT INFORMATION
  Report Type: Spontaneous
  Country: US (occurrence: US)
  Receive Date: 20180322
  Receipt Date: 20180422
  Transmission Date: 20180711
  Serious: Yes (Hospitalization, Other)
  Sender: FDA-Public Use
  Company Number: US-APOTEX-2018AP008452

PATIENT
  Age: 56 Year
  Sex: Female

DRUGS (6)
  1. LACTULOSE. [Suspect]
     Active Substance: LACTULOSE
     Indication: LIVER INJURY
     Route: 065
  2. RIFAXIMIN. [Suspect]
     Active Substance: RIFAXIMIN
     Indication: LIVER INJURY
     Route: 065
  3. ACETYL CYSTEINE SENJU [Suspect]
     Active Substance: ACETYLCYSTEINE
     Indication: LIVER INJURY
     Route: 065
  4. PANTOPRAZOLE [Suspect]
     Active Substance: PANTOPRAZOLE
     Indication: LIVER INJURY
     Route: 065
  5. CRIZOTINIB [Concomitant]
     Active Substance: CRIZOTINIB
     Indication: PRODUCT USED FOR UNKNOWN INDICATION
     Dosage: 250 MG, BID
     Route: 065
  6. VITAMIN K [Suspect]
     Active Substance: PHYTONADIONE
     Indication: LIVER INJURY
     Route: 065

REACTIONS (1)
  - Drug ineffective [Unknown]
